FAERS Safety Report 21314112 (Version 1)
Quarter: 2022Q3

REPORT INFORMATION
  Report Type: Report from Study
  Country: US (occurrence: US)
  Receive Date: 20220909
  Receipt Date: 20220909
  Transmission Date: 20221026
  Serious: Yes (Death)
  Sender: FDA-Public Use
  Company Number: US-ABBVIE-22K-163-4532960-00

PATIENT
  Sex: Female

DRUGS (5)
  1. RINVOQ [Suspect]
     Active Substance: UPADACITINIB
     Indication: Rheumatoid arthritis
     Route: 048
  2. Pfizer/BioNtech covid-19 vaccine (NON-ABBVIE) [Concomitant]
     Indication: COVID-19 immunisation
     Dosage: 1ST DOSE
     Route: 030
     Dates: start: 20210122, end: 20210122
  3. Pfizer/BioNtech covid-19 vaccine (NON-ABBVIE) [Concomitant]
     Dosage: 2ND DOSE
     Route: 030
     Dates: start: 20210215, end: 20210215
  4. Pfizer/BioNtech covid-19 vaccine (NON-ABBVIE) [Concomitant]
     Dosage: 3RD DOSE
     Route: 030
     Dates: start: 20211026, end: 20211026
  5. Pfizer/BioNtech covid-19 vaccine (NON-ABBVIE) [Concomitant]
     Dosage: BOOSTER DOSE
     Route: 030
     Dates: start: 20220727, end: 20220727

REACTIONS (1)
  - Death [Fatal]
